FAERS Safety Report 7673276-5 (Version None)
Quarter: 2011Q3

REPORT INFORMATION
  Report Type: 
  Country: None (occurrence: None)
  Receive Date: 20110810
  Receipt Date: 20110804
  Transmission Date: 20111222
  Serious: Yes (Death, Hospitalization)
  Sender: FDA-Public Use
  Company Number: US-TEVA-294925USA

PATIENT
  Sex: Female
  Weight: 69.09 kg

DRUGS (3)
  1. LEUCOVORIN CALCIUM [Suspect]
     Indication: COLORECTAL CANCER STAGE III
     Route: 042
     Dates: start: 20110224, end: 20110224
  2. OXALIPLATIN [Suspect]
     Indication: COLORECTAL CANCER STAGE III
     Route: 041
     Dates: start: 20101215, end: 20101215
  3. FLUOROURACIL [Suspect]
     Route: 042
     Dates: start: 20110224, end: 20110224

REACTIONS (3)
  - INTERSTITIAL LUNG DISEASE [None]
  - PULMONARY TOXICITY [None]
  - LUNG INFECTION [None]
